FAERS Safety Report 10351236 (Version 2)
Quarter: 2014Q3

REPORT INFORMATION
  Report Type: Spontaneous
  Country: US (occurrence: US)
  Receive Date: 20140730
  Receipt Date: 20140730
  Transmission Date: 20150326
  Serious: Yes (Hospitalization, Other)
  Sender: FDA-Public Use
  Company Number: US-009507513-2011SP030612

PATIENT
  Sex: Female
  Weight: 68.4 kg

DRUGS (2)
  1. NUVARING [Suspect]
     Active Substance: ETHINYL ESTRADIOL\ETONOGESTREL
     Dosage: UNK
     Route: 067
     Dates: start: 200509, end: 200705
  2. NUVARING [Suspect]
     Active Substance: ETHINYL ESTRADIOL\ETONOGESTREL
     Indication: CONTRACEPTION
     Dosage: UNK
     Route: 067
     Dates: start: 200803, end: 20080717

REACTIONS (15)
  - Deep vein thrombosis [Unknown]
  - Depression [Unknown]
  - Splenomegaly [Unknown]
  - Musculoskeletal discomfort [Recovering/Resolving]
  - Transient ischaemic attack [Unknown]
  - Cervical dysplasia [Unknown]
  - Anxiety [Unknown]
  - Cholelithiasis [Unknown]
  - Pulmonary embolism [Recovered/Resolved]
  - Cerebellar infarction [Unknown]
  - Gallbladder disorder [Unknown]
  - Device expulsion [Unknown]
  - Vertebral artery dissection [Not Recovered/Not Resolved]
  - Blood cholesterol increased [Unknown]
  - Thyroid neoplasm [Unknown]

NARRATIVE: CASE EVENT DATE: 20070416
